FAERS Safety Report 15684078 (Version 1)
Quarter: 2018Q4

REPORT INFORMATION
  Report Type: Spontaneous
  Country: FR (occurrence: FR)
  Receive Date: 20181204
  Receipt Date: 20181204
  Transmission Date: 20190205
  Serious: Yes (Other)
  Sender: FDA-Public Use
  Company Number: FR-ACCORD-094500

PATIENT
  Age: 59 Year
  Sex: Female

DRUGS (1)
  1. AMLODIPINE [Suspect]
     Active Substance: AMLODIPINE BESYLATE
     Indication: HYPERTENSION
     Route: 048
     Dates: start: 20170807, end: 20170831

REACTIONS (2)
  - Thrombocytopenia [Recovering/Resolving]
  - Ecchymosis [Recovered/Resolved]

NARRATIVE: CASE EVENT DATE: 20170831
